FAERS Safety Report 11122649 (Version 2)
Quarter: 2015Q3

REPORT INFORMATION
  Report Type: Report from Study
  Country: US (occurrence: US)
  Receive Date: 20150519
  Receipt Date: 20150724
  Transmission Date: 20151125
  Serious: Yes (Congenital Anomaly)
  Sender: FDA-Public Use
  Company Number: US-ABBVIE-15P-163-1393203-00

PATIENT
  Age: 25 Year
  Sex: Female

DRUGS (5)
  1. EPZICOM [Suspect]
     Active Substance: ABACAVIR SULFATE\LAMIVUDINE
     Indication: HIV INFECTION
     Dosage: ONE COURSE, 1 TAB/CAPS
     Route: 048
     Dates: start: 20121214
  2. RETROVIR [Suspect]
     Active Substance: ZIDOVUDINE
     Dosage: SECOND COURSE
     Route: 042
     Dates: start: 20130625, end: 20130625
  3. NORVIR [Suspect]
     Active Substance: RITONAVIR
     Indication: HIV INFECTION
     Dosage: ONE COURSE
     Route: 048
     Dates: start: 20121214
  4. PREZISTA [Suspect]
     Active Substance: DARUNAVIR ETHANOLATE
     Indication: HIV INFECTION
     Route: 048
     Dates: start: 20121214
  5. RETROVIR [Suspect]
     Active Substance: ZIDOVUDINE
     Indication: HIV INFECTION
     Dosage: ONE COURSE
     Route: 042
     Dates: start: 20130625, end: 20130625

REACTIONS (2)
  - Drug-induced liver injury [Unknown]
  - Exposure during pregnancy [Unknown]
